FAERS Safety Report 4639673-7 (Version None)
Quarter: 2005Q2

REPORT INFORMATION
  Report Type: 
  Country: None (occurrence: None)
  Receive Date: 20050415
  Receipt Date: 20050404
  Transmission Date: 20051028
  Serious: Yes (Death)
  Sender: FDA-Public Use
  Company Number: 05P-167-0296244-00

PATIENT
  Age: 82 Year
  Sex: 0

DRUGS (6)
  1. BIAXIN [Suspect]
     Dosage: 2.8 MG , ORAL
     Route: 048
  2. WARFARIN SODIUM [Suspect]
  3. AMOXICILLIN [Suspect]
  4. SERTRATINE [Suspect]
     Indication: DEPRESSION
     Dosage: 50 MG, 1 IN 1 D, ORAL
     Route: 048
  5. DIGOXIN [Concomitant]
  6. ATENOLOL [Concomitant]

REACTIONS (3)
  - DRUG INTERACTION [None]
  - INTERNATIONAL NORMALISED RATIO INCREASED [None]
  - SUDDEN DEATH [None]
